FAERS Safety Report 5845146-6 (Version None)
Quarter: 2008Q3

REPORT INFORMATION
  Report Type: 
  Country: None (occurrence: None)
  Receive Date: 20080731
  Receipt Date: 20080422
  Transmission Date: 20090109
  Serious: No
  Sender: FDA-Public Use
  Company Number: US200804005723

PATIENT
  Age: 68 Year
  Sex: Female

DRUGS (6)
  1. BYETTA [Suspect]
     Indication: TYPE 2 DIABETES MELLITUS
     Dosage: 5 UG, 2/D, SUBCUTANEOUS
     Route: 058
     Dates: start: 20080301
  2. METFORMIN HCL [Concomitant]
  3. GLIPIZIDE [Concomitant]
  4. VERAPAMIL [Concomitant]
  5. ENALAPRIL MALEATE [Concomitant]
  6. ACIPHEX [Concomitant]

REACTIONS (6)
  - HUNGER [None]
  - INJECTION SITE HAEMORRHAGE [None]
  - NAUSEA [None]
  - NERVOUSNESS [None]
  - TREMOR [None]
  - VOMITING [None]
